FAERS Safety Report 8771103 (Version 2)
Quarter: 2013Q2

REPORT INFORMATION
  Report Type: Spontaneous
  Country: GB (occurrence: GB)
  Receive Date: 20120906
  Receipt Date: 20130626
  Transmission Date: 20140414
  Serious: Yes (Other)
  Sender: FDA-Public Use
  Company Number: GB-PFIZER INC-2012217155

PATIENT
  Sex: Male

DRUGS (1)
  1. AMLODIPINE BESILATE [Suspect]
     Indication: HYPERTENSION
     Dosage: 5 MG, UNK
     Dates: start: 201107, end: 201203

REACTIONS (7)
  - Pruritus [Recovering/Resolving]
  - Blood pressure diastolic decreased [Recovering/Resolving]
  - Drug eruption [Recovering/Resolving]
  - Onychoclasis [Unknown]
  - Arthralgia [Unknown]
  - Pain in extremity [Unknown]
  - Vitamin D decreased [Unknown]
